FAERS Safety Report 8958869 (Version 2)
Quarter: 2012Q4

REPORT INFORMATION
  Report Type: 
  Country: US (occurrence: US)
  Receive Date: 20121212
  Receipt Date: 20121227
  Transmission Date: 20130627
  Serious: No
  Sender: FDA-Public Use
  Company Number: US-ASTRAZENECA-2012SE89852

PATIENT
  Age: 75 Year
  Sex: Female
  Weight: 63.5 kg

DRUGS (17)
  1. SYMBICORT PMDI [Suspect]
     Indication: ASTHMA
     Dosage: 360 MCG BID
     Route: 055
     Dates: start: 20121127
  2. SYMBICORT PMDI [Suspect]
     Indication: DYSPNOEA
     Dosage: 360 MCG BID
     Route: 055
     Dates: start: 20121127
  3. SYMBICORT PMDI [Suspect]
     Indication: ASTHMA
     Dosage: BID
     Route: 055
     Dates: start: 20121129, end: 20121203
  4. SYMBICORT PMDI [Suspect]
     Indication: DYSPNOEA
     Dosage: BID
     Route: 055
     Dates: start: 20121129, end: 20121203
  5. NEXIUM [Suspect]
     Route: 048
  6. PAROXETIME [Concomitant]
  7. AMYTRIPTILINE [Concomitant]
     Indication: ANXIETY
  8. AMYTRIPTILINE [Concomitant]
     Indication: DEPRESSION
  9. DIAZEPAM [Concomitant]
     Indication: DEPRESSION
  10. DIAZEPAM [Concomitant]
     Indication: ANXIETY
  11. WALZYR [Concomitant]
  12. MECLAZINE [Concomitant]
     Indication: VERTIGO
  13. HYDROCODONE [Concomitant]
  14. ACETAMINAPHIN [Concomitant]
  15. PAXIL [Concomitant]
     Indication: DEPRESSION
  16. PAXIL [Concomitant]
     Indication: ANXIETY
  17. TIAZAC [Concomitant]
     Indication: MYOCARDIAL INFARCTION

REACTIONS (8)
  - Eye disorder [Recovered/Resolved]
  - Adverse event [Unknown]
  - Pollakiuria [Recovered/Resolved]
  - Abdominal pain upper [Not Recovered/Not Resolved]
  - Somnolence [Not Recovered/Not Resolved]
  - Blood potassium decreased [Unknown]
  - Muscle spasms [Unknown]
  - Tremor [Not Recovered/Not Resolved]
